FAERS Safety Report 7117146 (Version 2)
Quarter: 2013Q2

REPORT INFORMATION
  Report Type: Report from Study
  Country: US (occurrence: US)
  Receive Date: 20090917
  Receipt Date: 20130422
  Transmission Date: 20140414
  Serious: Yes (Death, Hospitalization)
  Sender: FDA-Public Use
  Company Number: US-BRISTOL-MYERS SQUIBB COMPANY-14779334

PATIENT
  Age: 54 Year
  Sex: Female
  Weight: 86.8 kg

DRUGS (3)
  1. ERBITUX [Suspect]
     Indication: OESOPHAGEAL SQUAMOUS CELL CARCINOMA
     Dosage: TOTAL NUMBER OF COURSE:5
     Dates: start: 20090804, end: 20090901
  2. CISPLATIN [Suspect]
     Indication: OESOPHAGEAL SQUAMOUS CELL CARCINOMA
     Dosage: TOTAL NUMBER OF COURSE:5
     Dates: start: 20090804, end: 20090901
  3. TAXOL [Suspect]
     Indication: OESOPHAGEAL SQUAMOUS CELL CARCINOMA
     Dosage: TOTAL NUMBER OF COURSE:5
     Dates: start: 20090804, end: 20090901

REACTIONS (1)
  - Radiation injury [Fatal]
